FAERS Safety Report 19646982 (Version 4)
Quarter: 2022Q2

REPORT INFORMATION
  Report Type: Report from Study
  Country: US (occurrence: US)
  Receive Date: 20210802
  Receipt Date: 20220516
  Transmission Date: 20220721
  Serious: Yes (Other)
  Sender: FDA-Public Use
  Company Number: US-MYLANLABS-2021M1041403

PATIENT
  Age: 50 Year
  Sex: Female
  Weight: 88 kg

DRUGS (4)
  1. GLATIRAMER ACETATE [Suspect]
     Active Substance: GLATIRAMER ACETATE
     Indication: Relapsing-remitting multiple sclerosis
     Dosage: 40 MILLIGRAM, 3XW
     Route: 058
  2. GLATIRAMER ACETATE [Suspect]
     Active Substance: GLATIRAMER ACETATE
     Dosage: 40 MILLIGRAM, 3XW
     Route: 058
  3. CELEBREX [Suspect]
     Active Substance: CELECOXIB
     Indication: Pain
     Dosage: UNK
  4. GABAPENTIN [Suspect]
     Active Substance: GABAPENTIN
     Indication: Product used for unknown indication
     Dosage: UNK

REACTIONS (14)
  - Multiple sclerosis [Unknown]
  - Drug ineffective [Unknown]
  - Neuralgia [Unknown]
  - Aphonia [Unknown]
  - Injection site pain [Unknown]
  - Injection site swelling [Unknown]
  - Injection site haemorrhage [Unknown]
  - Weight increased [Unknown]
  - Product dose omission issue [Unknown]
  - Amnesia [Unknown]
  - Gait disturbance [Unknown]
  - Injection site bruising [Unknown]
  - Injection site mass [Unknown]
  - Fatigue [Unknown]

NARRATIVE: CASE EVENT DATE: 20210706
